FAERS Safety Report 15531289 (Version 1)
Quarter: 2018Q4

REPORT INFORMATION
  Report Type: Spontaneous
  Country: US (occurrence: US)
  Receive Date: 20181019
  Receipt Date: 20181019
  Transmission Date: 20190205
  Serious: No
  Sender: FDA-Public Use
  Company Number: US-009507513-1810USA007661

PATIENT
  Sex: Female

DRUGS (4)
  1. SINEMET [Suspect]
     Active Substance: CARBIDOPA\LEVODOPA
     Indication: PARKINSON^S DISEASE
     Route: 048
  2. NORTHERA [Suspect]
     Active Substance: DROXIDOPA
     Dosage: 200 MG, TID
     Route: 048
     Dates: start: 2018, end: 2018
  3. NORTHERA [Suspect]
     Active Substance: DROXIDOPA
     Dosage: 100 MG, TID
     Dates: start: 20180911, end: 20180915
  4. NORTHERA [Suspect]
     Active Substance: DROXIDOPA
     Dosage: 300 MG, TID
     Route: 048
     Dates: start: 2018, end: 2018

REACTIONS (2)
  - Vision blurred [Unknown]
  - Dizziness [Unknown]
